FAERS Safety Report 18902120 (Version 1)
Quarter: 2021Q1

REPORT INFORMATION
  Report Type: Report from Study
  Country: FR (occurrence: FR)
  Receive Date: 20210216
  Receipt Date: 20210216
  Transmission Date: 20210420
  Serious: Yes (Other)
  Sender: FDA-Public Use
  Company Number: FR-PFIZER INC-2021135960

PATIENT
  Age: 64 Year
  Sex: Male
  Weight: 110 kg

DRUGS (3)
  1. ATGAM [Suspect]
     Active Substance: EQUINE THYMOCYTE IMMUNE GLOBULIN
     Indication: BONE MARROW FAILURE
     Dosage: 40 MG/KG, DAILY
     Dates: start: 20200721, end: 20200724
  2. ELTROMBOPAG [Concomitant]
     Active Substance: ELTROMBOPAG
  3. CICLOSPORINE [Concomitant]
     Active Substance: CYCLOSPORINE
     Dosage: 250?300

REACTIONS (4)
  - Hepatocellular injury [Unknown]
  - Hypertension [Unknown]
  - Cholestasis [Unknown]
  - Infusion related reaction [Unknown]

NARRATIVE: CASE EVENT DATE: 20200730
